FAERS Safety Report 5378728-9 (Version None)
Quarter: 2007Q3

REPORT INFORMATION
  Report Type: 
  Country: None (occurrence: None)
  Receive Date: 20070705
  Receipt Date: 20070627
  Transmission Date: 20080115
  Serious: Yes (Hospitalization)
  Sender: FDA-Public Use
  Company Number: B0475121A

PATIENT
  Age: 43 Year
  Sex: Male

DRUGS (1)
  1. CLAVULIN [Suspect]
     Indication: TOOTH ABSCESS
     Dosage: 2G PER DAY
     Route: 048
     Dates: start: 20070525, end: 20070527

REACTIONS (9)
  - ABDOMINAL PAIN [None]
  - ASTHENIA [None]
  - DIARRHOEA HAEMORRHAGIC [None]
  - ENTERITIS [None]
  - GASTROENTERITIS SALMONELLA [None]
  - NAUSEA [None]
  - RECTAL HAEMORRHAGE [None]
  - VIRAL INFECTION [None]
  - VOMITING [None]
